FAERS Safety Report 22337525 (Version 2)
Quarter: 2023Q2

REPORT INFORMATION
  Report Type: Spontaneous
  Country: JP (occurrence: JP)
  Receive Date: 20230518
  Receipt Date: 20230623
  Transmission Date: 20230721
  Serious: Yes (Death, Other)
  Sender: FDA-Public Use
  Company Number: JP-GSKJP-JP2022JPN201009AA

PATIENT

DRUGS (6)
  1. DAPRODUSTAT [Suspect]
     Active Substance: DAPRODUSTAT
     Indication: Nephrogenic anaemia
     Dosage: 2 MG, QD
     Dates: start: 20210924, end: 20211208
  2. ENALAPRIL MALEATE [Concomitant]
     Active Substance: ENALAPRIL MALEATE
     Indication: Hypertension
     Dosage: 5 MG, QD
     Route: 048
     Dates: end: 20211208
  3. BISOPROLOL FUMARATE [Concomitant]
     Active Substance: BISOPROLOL FUMARATE
     Indication: Hypertension
     Dosage: 5 MG, QD
     Route: 048
     Dates: end: 20211208
  4. XARELTO [Concomitant]
     Active Substance: RIVAROXABAN
     Dosage: UNK
     Route: 048
  5. TRAMCET [Concomitant]
     Active Substance: ACETAMINOPHEN\TRAMADOL
     Dosage: UNK
     Route: 048
  6. ZINC [Concomitant]
     Active Substance: ZINC
     Dosage: UNK
     Route: 048

REACTIONS (1)
  - Death [Fatal]
